FAERS Safety Report 4757162-6 (Version None)
Quarter: 2005Q3

REPORT INFORMATION
  Report Type: 
  Country: None (occurrence: None)
  Receive Date: 20050829
  Receipt Date: 20050815
  Transmission Date: 20060218
  Serious: Yes (Hospitalization)
  Sender: FDA-Public Use
  Company Number: 2005BI015402

PATIENT
  Age: 58 Year
  Sex: Female
  Weight: 62.5964 kg

DRUGS (6)
  1. AVONEX [Suspect]
     Indication: MULTIPLE SCLEROSIS
     Dosage: 30 UG; QW; IM
     Route: 030
     Dates: start: 20021001, end: 20030801
  2. AVONEX [Suspect]
     Indication: MULTIPLE SCLEROSIS
     Dosage: 30 UG; QW; IM
     Route: 030
     Dates: start: 20030801, end: 20050711
  3. ACIPHEX [Concomitant]
  4. ACCUPRIL [Concomitant]
  5. PLAVIX [Concomitant]
  6. CELEBREX [Concomitant]

REACTIONS (7)
  - ARTERIAL INJURY [None]
  - CORONARY ARTERY OCCLUSION [None]
  - DEPRESSION [None]
  - FATIGUE [None]
  - IATROGENIC INJURY [None]
  - POSTOPERATIVE INFECTION [None]
  - PULMONARY OEDEMA [None]
